FAERS Safety Report 6551650-8 (Version None)
Quarter: 2010Q1

REPORT INFORMATION
  Report Type: 
  Country: None (occurrence: None)
  Receive Date: 20100126
  Receipt Date: 20100118
  Transmission Date: 20100710
  Serious: Yes (Hospitalization)
  Sender: FDA-Public Use
  Company Number: US-PFIZER INC-2010007189

PATIENT
  Age: 51 Year
  Sex: Male

DRUGS (3)
  1. NELFINAVIR MESILATE [Suspect]
     Indication: HIV INFECTION
     Dosage: 1250 MG, 2X/DAY
  2. EFAVIRENZ [Suspect]
     Indication: HIV INFECTION
     Dosage: 600 MG, 1X/DAY
  3. ABACAVIR [Suspect]
     Indication: HIV INFECTION
     Dosage: 300 MG, 2X/DAY

REACTIONS (1)
  - PERIPHERAL NERVE PALSY [None]
